FAERS Safety Report 12649229 (Version 3)
Quarter: 2017Q2

REPORT INFORMATION
  Report Type: Report from Study
  Country: JP (occurrence: JP)
  Receive Date: 20160812
  Receipt Date: 20170606
  Transmission Date: 20170830
  Serious: Yes (Death, Other)
  Sender: FDA-Public Use
  Company Number: JP-INCYTE CORPORATION-2016IN001952

PATIENT

DRUGS (6)
  1. HYDREA [Concomitant]
     Active Substance: HYDROXYUREA
     Dosage: 1000 MG, UNK
     Route: 048
     Dates: start: 201312, end: 201404
  2. REVATIO [Suspect]
     Active Substance: SILDENAFIL CITRATE
     Indication: PRODUCT USED FOR UNKNOWN INDICATION
     Dosage: UNK
     Route: 048
  3. JAKAVI [Suspect]
     Active Substance: RUXOLITINIB
     Indication: POLYCYTHAEMIA VERA
     Dosage: 5 MG, BID
     Route: 048
     Dates: start: 20151007
  4. BESTRNER [Concomitant]
     Indication: PRODUCT USED FOR UNKNOWN INDICATION
     Dosage: UNK
     Route: 065
  5. HYDREA [Concomitant]
     Active Substance: HYDROXYUREA
     Indication: POLYCYTHAEMIA VERA
     Dosage: 1000 MG, UNK
     Route: 048
     Dates: start: 20110824, end: 201201
  6. HYDREA [Concomitant]
     Active Substance: HYDROXYUREA
     Dosage: 1000 MG, UNK
     Route: 048
     Dates: start: 201408, end: 201409

REACTIONS (3)
  - Therapeutic response unexpected [Unknown]
  - Asphyxia [Fatal]
  - Pulmonary hypertension [Recovering/Resolving]

NARRATIVE: CASE EVENT DATE: 20151127
